FAERS Safety Report 5072029-4 (Version None)
Quarter: 2006Q3

REPORT INFORMATION
  Report Type: 
  Country: None (occurrence: None)
  Receive Date: 20060714
  Receipt Date: 20060530
  Transmission Date: 20061208
  Serious: No
  Sender: FDA-Public Use
  Company Number: 2006SP002238

PATIENT
  Age: 64 Year
  Sex: Female
  Weight: 127.0072 kg

DRUGS (7)
  1. LUNESTA [Suspect]
     Indication: INSOMNIA
     Dosage: 3 MG;1X; ORAL
     Route: 048
     Dates: start: 20060526, end: 20060526
  2. ATORVASTATIN CALCIUM [Concomitant]
  3. NEXIUM [Concomitant]
  4. METOPROLOL TARTRATE [Concomitant]
  5. ZOLOFT [Concomitant]
  6. TRAMADOL HCL [Concomitant]
  7. VITAMINS [Concomitant]

REACTIONS (1)
  - DYSGEUSIA [None]
